FAERS Safety Report 16188720 (Version 3)
Quarter: 2023Q2

REPORT INFORMATION
  Report Type: Spontaneous
  Country: US (occurrence: US)
  Receive Date: 20190412
  Receipt Date: 20230518
  Transmission Date: 20230722
  Serious: No
  Sender: FDA-Public Use
  Company Number: US-BIOGEN-2018BI00660472

PATIENT
  Sex: Male

DRUGS (22)
  1. AVONEX [Suspect]
     Active Substance: INTERFERON BETA-1A
     Indication: Multiple sclerosis
     Dosage: INJECT 30 MCG INTRAMUSCULARLY ONCE WEEKLY
     Route: 050
     Dates: start: 200001, end: 2018
  2. AVONEX [Suspect]
     Active Substance: INTERFERON BETA-1A
  3. AVONEX [Suspect]
     Active Substance: INTERFERON BETA-1A
  4. AVONEX [Suspect]
     Active Substance: INTERFERON BETA-1A
  5. AVONEX [Suspect]
     Active Substance: INTERFERON BETA-1A
  6. AVONEX PEN [Suspect]
     Active Substance: INTERFERON BETA-1A
     Indication: Multiple sclerosis
     Route: 050
     Dates: start: 2018
  7. AVONEX PEN [Suspect]
     Active Substance: INTERFERON BETA-1A
  8. AVONEX PEN [Suspect]
     Active Substance: INTERFERON BETA-1A
  9. AVONEX PEN [Suspect]
     Active Substance: INTERFERON BETA-1A
  10. AVONEX [Suspect]
     Active Substance: INTERFERON BETA-1A
     Indication: Multiple sclerosis
     Route: 050
  11. AVONEX [Suspect]
     Active Substance: INTERFERON BETA-1A
  12. AVONEX [Suspect]
     Active Substance: INTERFERON BETA-1A
  13. AVONEX [Suspect]
     Active Substance: INTERFERON BETA-1A
  14. OMEPRAZOLE [Concomitant]
     Active Substance: OMEPRAZOLE
     Route: 050
  15. TAMSULOSIN HYDROCHLORIDE [Concomitant]
     Active Substance: TAMSULOSIN HYDROCHLORIDE
     Route: 050
  16. CETIRIZINE HCL [Concomitant]
     Active Substance: CETIRIZINE HYDROCHLORIDE
     Route: 050
  17. NAPROXEN [Concomitant]
     Active Substance: NAPROXEN
     Route: 050
  18. PANTOPRAZOLE SODIUM [Concomitant]
     Active Substance: PANTOPRAZOLE SODIUM
     Route: 050
  19. CELEBREX [Concomitant]
     Active Substance: CELECOXIB
     Route: 050
  20. LISINOPRIL [Concomitant]
     Active Substance: LISINOPRIL
     Route: 050
  21. DICYCLOMINE HYDROCHLORIDE [Concomitant]
     Active Substance: DICYCLOMINE HYDROCHLORIDE
     Route: 050
  22. ACETAMINOPHEN [Concomitant]
     Active Substance: ACETAMINOPHEN
     Route: 050

REACTIONS (6)
  - Dysstasia [Not Recovered/Not Resolved]
  - Muscle strain [Not Recovered/Not Resolved]
  - Bradykinesia [Unknown]
  - Muscle enzyme increased [Unknown]
  - Muscular weakness [Not Recovered/Not Resolved]
  - Influenza like illness [Unknown]

NARRATIVE: CASE EVENT DATE: 20180101
